FAERS Safety Report 5406741-1 (Version None)
Quarter: 2007Q3

REPORT INFORMATION
  Report Type: 
  Country: None (occurrence: None)
  Receive Date: 20070807
  Receipt Date: 20070801
  Transmission Date: 20080115
  Serious: Yes (Other)
  Sender: FDA-Public Use
  Company Number: PHNU2007DE01260

PATIENT
  Age: 52 Year
  Sex: Male

DRUGS (2)
  1. LEPONEX [Suspect]
     Indication: DELUSIONAL DISORDER, PERSECUTORY TYPE
     Dosage: 200 MG, QD
     Route: 048
     Dates: start: 19960101, end: 20070303
  2. FLUOXETINE HCL [Concomitant]
     Indication: DEPRESSION
     Dosage: 40 MG/DAY
     Route: 048
     Dates: start: 20060101

REACTIONS (4)
  - BRONCHOPNEUMONIA [None]
  - C-REACTIVE PROTEIN INCREASED [None]
  - LEUKOPENIA [None]
  - NEUTROPENIA [None]
